FAERS Safety Report 16689704 (Version 1)
Quarter: 2019Q3

REPORT INFORMATION
  Report Type: Spontaneous
  Country: US (occurrence: US)
  Receive Date: 20190809
  Receipt Date: 20190809
  Transmission Date: 20191004
  Serious: Yes (Life-Threatening, Hospitalization, Other)
  Sender: FDA-Public Use
  Company Number: US-STRIDES ARCOLAB LIMITED-2019SP007388

PATIENT
  Age: 54 Year
  Sex: Male

DRUGS (1)
  1. IBUPROFEN. [Suspect]
     Active Substance: IBUPROFEN
     Indication: ARTHRALGIA
     Dosage: 800 MG, EVERY 8 HOURS
     Route: 065

REACTIONS (17)
  - Symptom masked [Recovered/Resolved]
  - Faeces discoloured [Recovered/Resolved]
  - Syncope [Recovered/Resolved]
  - Arterial occlusive disease [Recovered/Resolved]
  - Duodenal ulcer [Recovered/Resolved]
  - Shock haemorrhagic [Recovered/Resolved]
  - Haemophilus infection [Unknown]
  - Ischaemic hepatitis [Recovered/Resolved]
  - Haematemesis [Recovered/Resolved]
  - Fall [Recovered/Resolved]
  - Streptococcal infection [Unknown]
  - Ankle fracture [Recovered/Resolved]
  - Hepatic artery stenosis [Recovered/Resolved]
  - Haemoglobin decreased [Unknown]
  - Upper gastrointestinal haemorrhage [Recovered/Resolved]
  - Vascular pseudoaneurysm [Recovered/Resolved]
  - Hepatic infarction [Recovered/Resolved]
